FAERS Safety Report 8127711-9 (Version None)
Quarter: 2012Q1

REPORT INFORMATION
  Report Type: 
  Country: None (occurrence: None)
  Receive Date: 20120210
  Receipt Date: 20120203
  Transmission Date: 20120608
  Serious: Yes (Death, Hospitalization)
  Sender: FDA-Public Use
  Company Number: US-CTI_01444_2012

PATIENT
  Sex: Female

DRUGS (1)
  1. ZYFLO CR [Suspect]
     Indication: INFECTION
     Dosage: DF

REACTIONS (4)
  - DRUG INEFFECTIVE [None]
  - DEATH [None]
  - PRODUCT QUALITY ISSUE [None]
  - PALPITATIONS [None]
